FAERS Safety Report 9164088 (Version 3)
Quarter: 2013Q3

REPORT INFORMATION
  Report Type: Spontaneous
  Country: DE (occurrence: DE)
  Receive Date: 20130314
  Receipt Date: 20130703
  Transmission Date: 20140515
  Serious: Yes (Other)
  Sender: FDA-Public Use
  Company Number: DE-BRISTOL-MYERS SQUIBB COMPANY-17455452

PATIENT
  Age: 52 Year
  Sex: Female

DRUGS (2)
  1. ABILIFY TABS 10 MG [Suspect]
     Indication: PSYCHOTIC DISORDER
     Dates: start: 20070323
  2. ABILIFY TABS 10 MG [Suspect]
     Indication: SCHIZOPHRENIA, PARANOID TYPE
     Dates: start: 20070323

REACTIONS (1)
  - Breast cancer [Not Recovered/Not Resolved]
